FAERS Safety Report 5072879-4 (Version None)
Quarter: 2006Q3

REPORT INFORMATION
  Report Type: 
  Country: None (occurrence: None)
  Receive Date: 20060802
  Receipt Date: 20060728
  Transmission Date: 20061208
  Serious: Yes (Death)
  Sender: FDA-Public Use
  Company Number: B0432527A

PATIENT
  Age: 20 Year
  Sex: Male

DRUGS (2)
  1. VENTOLIN [Suspect]
     Indication: ASTHMA
     Dosage: INHALED
     Route: 055
  2. BECLOMETHASONE DIPROPIONATE [Concomitant]

REACTIONS (1)
  - DRUG DISPENSING ERROR [None]
